FAERS Safety Report 6464061-0 (Version None)
Quarter: 2009Q4

REPORT INFORMATION
  Report Type: 
  Country: None (occurrence: None)
  Receive Date: 20091110
  Receipt Date: 20090714
  Transmission Date: 20100525
  Serious: No
  Sender: FDA-Public Use
  Company Number: 1000007467

PATIENT
  Age: 46 Year
  Sex: Male

DRUGS (4)
  1. SAVELLA [Suspect]
     Indication: FIBROMYALGIA
     Dosage: 12.5 MG (12.5 MG, 1 IN 1 D), ORAL; 25 MG (12.5 MG, 2 IN 1 ),ORAL; 50 MG (25 MG, 2 IN 1 D),ORAL
     Route: 048
     Dates: start: 20090710, end: 20090710
  2. SAVELLA [Suspect]
     Indication: FIBROMYALGIA
     Dosage: 12.5 MG (12.5 MG, 1 IN 1 D), ORAL; 25 MG (12.5 MG, 2 IN 1 ),ORAL; 50 MG (25 MG, 2 IN 1 D),ORAL
     Route: 048
     Dates: start: 20090711, end: 20090712
  3. SAVELLA [Suspect]
     Indication: FIBROMYALGIA
     Dosage: 12.5 MG (12.5 MG, 1 IN 1 D), ORAL; 25 MG (12.5 MG, 2 IN 1 ),ORAL; 50 MG (25 MG, 2 IN 1 D),ORAL
     Route: 048
     Dates: start: 20090713
  4. TRAZODONE HCL [Concomitant]

REACTIONS (4)
  - ANXIETY [None]
  - HEART RATE INCREASED [None]
  - INSOMNIA [None]
  - MUSCULAR WEAKNESS [None]
